FAERS Safety Report 8775917 (Version 1)
Quarter: 2012Q4

REPORT INFORMATION
  Report Type: 
  Country: BR (occurrence: BR)
  Receive Date: 20120910
  Receipt Date: 20120910
  Transmission Date: 20130627
  Serious: Yes (Hospitalization)
  Sender: FDA-Public Use
  Company Number: BR-ASTRAZENECA-2012SE69629

PATIENT
  Age: 16 Year
  Sex: Male
  Weight: 50 kg

DRUGS (1)
  1. SYMBICORT TURBUHALER [Suspect]
     Indication: BRONCHITIS
     Dosage: BID
     Route: 055
     Dates: start: 201002, end: 201102

REACTIONS (1)
  - Varicocele [Recovered/Resolved]
